FAERS Safety Report 12613809 (Version 1)
Quarter: 2016Q3

REPORT INFORMATION
  Report Type: Spontaneous
  Country: US (occurrence: None)
  Receive Date: 20160801
  Receipt Date: 20160801
  Transmission Date: 20161109
  Serious: No
  Sender: FDA-Public Use
  Company Number: None

PATIENT
  Age: 20 Year
  Sex: Female
  Weight: 72.58 kg

DRUGS (7)
  1. MELATONIN [Concomitant]
     Active Substance: MELATONIN
  2. CETRIZINE HYDROCHLORIDE (ZYRTEC) [Concomitant]
  3. SERTRALINE [Concomitant]
     Active Substance: SERTRALINE HYDROCHLORIDE
  4. CYCLOBENZAPREN [Concomitant]
  5. VITAMIN D [Concomitant]
     Active Substance: CHOLECALCIFEROL
  6. NAPROXEN. [Concomitant]
     Active Substance: NAPROXEN
  7. LYRICA [Suspect]
     Active Substance: PREGABALIN
     Indication: FIBROMYALGIA
     Dosage: 1 CAPSULE(S) AT BEDTIME TAKEN BY MOUTH
     Route: 048
     Dates: start: 20160728, end: 20160729

REACTIONS (4)
  - Arthralgia [None]
  - Myalgia [None]
  - Pain [None]
  - Neuralgia [None]

NARRATIVE: CASE EVENT DATE: 20160728
